FAERS Safety Report 6251488-5 (Version None)
Quarter: 2009Q2

REPORT INFORMATION
  Report Type: 
  Country: None (occurrence: None)
  Receive Date: 20090630
  Receipt Date: 20090625
  Transmission Date: 20091009
  Serious: Yes (Other)
  Sender: FDA-Public Use
  Company Number: GB-JNJFOC-20090607893

PATIENT
  Age: 80 Year
  Sex: Female

DRUGS (1)
  1. TRAMACET [Suspect]
     Indication: DRUG USE FOR UNKNOWN INDICATION
     Dosage: INITIATED ON AN UNKNOWN DATE THREE WEEKS BEFORE THIS REPORT
     Route: 048

REACTIONS (5)
  - AGITATION [None]
  - HALLUCINATION [None]
  - LOSS OF CONSCIOUSNESS [None]
  - SYNCOPE [None]
  - VOMITING [None]
